FAERS Safety Report 4464989-7 (Version None)
Quarter: 2004Q4

REPORT INFORMATION
  Report Type: 
  Country: None (occurrence: None)
  Receive Date: 20041004
  Receipt Date: 20040318
  Transmission Date: 20050328
  Serious: No
  Sender: FDA-Public Use
  Company Number: US-GLAXOSMITHKLINE-A0511299A

PATIENT

DRUGS (1)
  1. COREG [Suspect]
     Dosage: 6.25MG TWICE PER DAY
     Route: 048

REACTIONS (1)
  - DYSPNOEA [None]
